FAERS Safety Report 14324940 (Version 1)
Quarter: 2017Q4

REPORT INFORMATION
  Report Type: Spontaneous
  Country: US (occurrence: US)
  Receive Date: 20171223
  Receipt Date: 20171223
  Transmission Date: 20180321
  Serious: Yes (Other)
  Sender: FDA-Public Use
  Company Number: None

PATIENT
  Age: 56 Year
  Sex: Male
  Weight: 76.5 kg

DRUGS (1)
  1. ARESTIN [Suspect]
     Active Substance: MINOCYCLINE HYDROCHLORIDE
     Indication: GINGIVAL DISORDER
     Dosage: ?          OTHER ROUTE:PLACED BETWEEN GUM AND TOOTH BY DENTIST?
     Dates: start: 20170921, end: 20170921

REACTIONS (1)
  - Renal pain [None]

NARRATIVE: CASE EVENT DATE: 20170921
